FAERS Safety Report 6409675-9 (Version None)
Quarter: 2009Q4

REPORT INFORMATION
  Report Type: 
  Country: None (occurrence: None)
  Receive Date: 20091021
  Receipt Date: 20091021
  Transmission Date: 20100525
  Serious: Yes (Life-Threatening, Disabling)
  Sender: FDA-Public Use
  Company Number: None

PATIENT
  Age: 55 Year
  Sex: Female
  Weight: 83.9154 kg

DRUGS (2)
  1. TRAMADOL HCL [Suspect]
     Indication: ARTHRALGIA
     Dosage: 50MG EVERY 6HRTS AS NEED PO
     Route: 048
     Dates: start: 20091009, end: 20091013
  2. TRAMADOL HCL [Suspect]
     Indication: JOINT SWELLING
     Dosage: 50MG EVERY 6HRTS AS NEED PO
     Route: 048
     Dates: start: 20091009, end: 20091013

REACTIONS (6)
  - EAR DISORDER [None]
  - PAIN OF SKIN [None]
  - SKIN ATROPHY [None]
  - SKIN DISCOLOURATION [None]
  - SKIN HAEMORRHAGE [None]
  - SKIN LACERATION [None]
